FAERS Safety Report 4284077-2 (Version None)
Quarter: 2004Q1

REPORT INFORMATION
  Report Type: 
  Country: None (occurrence: None)
  Receive Date: 20040202
  Receipt Date: 20040202
  Transmission Date: 20041129
  Serious: Yes (Other)
  Sender: FDA-Public Use
  Company Number: None

PATIENT
  Sex: Female
  Weight: 53.978 kg

DRUGS (2)
  1. NIASPAN [Suspect]
     Indication: CORONARY ARTERY DISEASE
     Dosage: 500 MG QHS ORAL
     Route: 048
  2. NIASPAN [Suspect]
     Indication: HYPERLIPIDAEMIA
     Dosage: 500 MG QHS ORAL
     Route: 048

REACTIONS (3)
  - CONJUNCTIVITIS BACTERIAL [None]
  - EYE PRURITUS [None]
  - EYE REDNESS [None]
